FAERS Safety Report 15375317 (Version 2)
Quarter: 2018Q3

REPORT INFORMATION
  Report Type: Spontaneous
  Country: US (occurrence: US)
  Receive Date: 20180912
  Receipt Date: 20180914
  Transmission Date: 20181010
  Serious: No
  Sender: FDA-Public Use
  Company Number: US-SA-2018SA252341

PATIENT
  Age: 39 Year
  Sex: Female

DRUGS (2)
  1. ALLEGRA D?12 HOUR [Suspect]
     Active Substance: FEXOFENADINE HYDROCHLORIDE\PSEUDOEPHEDRINE HYDROCHLORIDE
     Dosage: 60/120 MG,ONCE DAILY AS NEEDED
     Route: 065
  2. ALLEGRA D?12 HOUR [Suspect]
     Active Substance: FEXOFENADINE HYDROCHLORIDE\PSEUDOEPHEDRINE HYDROCHLORIDE
     Dosage: 60/120 MG,ONCE DAILY AS NEEDED
     Route: 065

REACTIONS (2)
  - Treatment failure [Unknown]
  - Product quality issue [Unknown]
